FAERS Safety Report 6231477-7 (Version None)
Quarter: 2009Q2

REPORT INFORMATION
  Report Type: 
  Country: None (occurrence: None)
  Receive Date: 20090612
  Receipt Date: 20090612
  Transmission Date: 20091009
  Serious: Yes (Hospitalization)
  Sender: FDA-Public Use
  Company Number: None

PATIENT
  Age: 36 Year
  Sex: Male
  Weight: 100 kg

DRUGS (5)
  1. HEPARIN [Suspect]
     Indication: DEEP VEIN THROMBOSIS
     Dosage: 15 ML/HR Q16H40M IV
     Route: 042
     Dates: start: 20090207, end: 20090213
  2. PREDNISONE TAB [Concomitant]
  3. OXYCODONE HCL [Concomitant]
  4. CELLCEPT [Concomitant]
  5. ARIXTRA [Concomitant]

REACTIONS (1)
  - HEPARIN-INDUCED THROMBOCYTOPENIA [None]
